FAERS Safety Report 25235477 (Version 1)
Quarter: 2025Q2

REPORT INFORMATION
  Report Type: Spontaneous
  Country: US (occurrence: US)
  Receive Date: 20250424
  Receipt Date: 20250424
  Transmission Date: 20250717
  Serious: Yes (Hospitalization)
  Sender: PFIZER
  Company Number: US-PFIZER INC-202500037083

PATIENT
  Age: 71 Year
  Sex: Female

DRUGS (2)
  1. BRAFTOVI [Suspect]
     Active Substance: ENCORAFENIB
     Indication: Colon cancer
     Dosage: 300 MG, 1X/DAY(TAKE 4 CAPSULES ONCE A DAY)
     Route: 048
     Dates: start: 20250203, end: 20250305
  2. BRAFTOVI [Suspect]
     Active Substance: ENCORAFENIB
     Dosage: 300 MG, 1X/DAY(TAKE 4 CAPSULES ONCE A DAY)
     Route: 048

REACTIONS (1)
  - Intentional self-injury [Unknown]
